FAERS Safety Report 24228247 (Version 1)
Quarter: 2024Q3

REPORT INFORMATION
  Report Type: Spontaneous
  Country: CA (occurrence: CA)
  Receive Date: 20240820
  Receipt Date: 20240820
  Transmission Date: 20241017
  Serious: Yes (Other)
  Sender: ROCHE
  Company Number: CA-ROCHE-10000054760

PATIENT
  Age: 50 Year
  Sex: Female

DRUGS (23)
  1. CLONAZEPAM [Suspect]
     Active Substance: CLONAZEPAM
     Indication: Restless legs syndrome
     Route: 065
  2. ACTEMRA [Suspect]
     Active Substance: TOCILIZUMAB
     Indication: Rheumatoid arthritis
     Route: 042
  3. ACTEMRA [Suspect]
     Active Substance: TOCILIZUMAB
     Route: 042
  4. ACTEMRA [Suspect]
     Active Substance: TOCILIZUMAB
     Route: 042
  5. ACTEMRA [Suspect]
     Active Substance: TOCILIZUMAB
     Route: 042
  6. ACTEMRA [Suspect]
     Active Substance: TOCILIZUMAB
     Route: 042
  7. ACTEMRA [Suspect]
     Active Substance: TOCILIZUMAB
     Route: 042
  8. ACTEMRA [Suspect]
     Active Substance: TOCILIZUMAB
     Route: 042
  9. DICLOFENAC [Suspect]
     Active Substance: DICLOFENAC
     Indication: Product used for unknown indication
     Route: 065
  10. PREDNISONE [Concomitant]
     Active Substance: PREDNISONE
  11. ARAVA [Concomitant]
     Active Substance: LEFLUNOMIDE
  12. ATORVASTATIN CALCIUM [Concomitant]
     Active Substance: ATORVASTATIN CALCIUM
  13. AVAPRO [Concomitant]
     Active Substance: IRBESARTAN
  14. BECLOMETHASONE [Concomitant]
     Active Substance: BECLOMETHASONE
  15. CALCIUM GLUCONATE [Concomitant]
     Active Substance: CALCIUM GLUCONATE
  16. CARDIZEM [Concomitant]
     Active Substance: DILTIAZEM HYDROCHLORIDE
  17. CITALOPRAMHYDROCHLORIDE [Concomitant]
  18. ESCITALOPRAM OXALATE [Concomitant]
     Active Substance: ESCITALOPRAM OXALATE
  19. FLOVENT [Concomitant]
     Active Substance: FLUTICASONE PROPIONATE
  20. IMODIUM [Concomitant]
     Active Substance: LOPERAMIDE HYDROCHLORIDE
  21. ORENCIA [Concomitant]
     Active Substance: ABATACEPT
  22. OXYCONTIN [Concomitant]
     Active Substance: OXYCODONE HYDROCHLORIDE
  23. PANTOPRAZOLE SODIUM [Concomitant]
     Active Substance: PANTOPRAZOLE SODIUM

REACTIONS (17)
  - Blood pressure diastolic abnormal [Unknown]
  - Blood pressure systolic abnormal [Unknown]
  - Blood pressure systolic increased [Unknown]
  - Dehydration [Unknown]
  - Gastrointestinal procedural complication [Unknown]
  - Grip strength decreased [Unknown]
  - Heart rate decreased [Unknown]
  - Joint swelling [Unknown]
  - Loss of personal independence in daily activities [Unknown]
  - Malaise [Unknown]
  - Movement disorder [Unknown]
  - Oxygen saturation decreased [Unknown]
  - Pain [Unknown]
  - Peripheral swelling [Unknown]
  - Sleep disorder [Unknown]
  - Urinary tract infection [Unknown]
  - Weight decreased [Unknown]
